FAERS Safety Report 22647831 (Version 1)
Quarter: 2023Q2

REPORT INFORMATION
  Report Type: Spontaneous
  Country: US (occurrence: US)
  Receive Date: 20230628
  Receipt Date: 20230628
  Transmission Date: 20230721
  Serious: No
  Sender: FDA-Public Use
  Company Number: US-UNITED THERAPEUTICS-UNT-2023-017210

PATIENT
  Sex: Female
  Weight: 54.422 kg

DRUGS (5)
  1. REMODULIN [Suspect]
     Active Substance: TREPROSTINIL
     Indication: Pulmonary arterial hypertension
     Dosage: UNK (SELF FILLED CASSETTE), CONTINUING
     Route: 058
     Dates: start: 2023
  2. REMODULIN [Suspect]
     Active Substance: TREPROSTINIL
     Indication: Pulmonary arterial hypertension
     Dosage: 0.030 ?G/KG (SELF FILL WITH 1.8 ML/CASSETTE; PUMP RATE 20 MCL/HOUR), CONTINUING
     Route: 058
     Dates: start: 202306
  3. REMODULIN [Suspect]
     Active Substance: TREPROSTINIL
     Dosage: UNK, CONTINUING
     Route: 058
     Dates: start: 20230615
  4. REMODULIN [Suspect]
     Active Substance: TREPROSTINIL
     Dosage: UNK (SELF FILL WITH 1.9 ML/CASSETTE; PUMP RATE 20 MCL/HOUR), CONTINUING
     Route: 058
  5. ADCIRCA [Concomitant]
     Active Substance: TADALAFIL
     Indication: Pulmonary arterial hypertension
     Dosage: UNK
     Route: 065

REACTIONS (11)
  - Nausea [Unknown]
  - Vomiting [Unknown]
  - Headache [Unknown]
  - Muscular weakness [Unknown]
  - Malaise [Unknown]
  - Device power source issue [Unknown]
  - Wrong technique in device usage process [Unknown]
  - Fatigue [Unknown]
  - Anxiety [Unknown]
  - Dysgeusia [Unknown]
  - Pain in extremity [Unknown]

NARRATIVE: CASE EVENT DATE: 20230101
